FAERS Safety Report 13861274 (Version 4)
Quarter: 2017Q4

REPORT INFORMATION
  Report Type: Spontaneous
  Country: BY (occurrence: BY)
  Receive Date: 20170811
  Receipt Date: 20171101
  Transmission Date: 20180320
  Serious: Yes (Death, Other)
  Sender: FDA-Public Use
  Company Number: BY-JNJFOC-20170805426

PATIENT
  Age: 52 Year
  Sex: Male
  Weight: 42 kg

DRUGS (12)
  1. BEDAQUILINE [Suspect]
     Active Substance: BEDAQUILINE
     Indication: TUBERCULOSIS
     Route: 048
     Dates: start: 20161206, end: 20170927
  2. IMIPENEM [Suspect]
     Active Substance: IMIPENEM
     Indication: TUBERCULOSIS
     Route: 042
     Dates: start: 20161206, end: 20170927
  3. AMOXICILLIN W/CLAVULANIC ACID [Suspect]
     Active Substance: AMOXICILLIN\CLAVULANIC ACID
     Indication: TUBERCULOSIS
     Route: 048
     Dates: start: 20161206, end: 20170927
  4. LINEZOLID. [Suspect]
     Active Substance: LINEZOLID
     Indication: TUBERCULOSIS
     Route: 048
     Dates: start: 20161206, end: 20170927
  5. VITAMIN B12 [Concomitant]
     Active Substance: CYANOCOBALAMIN
     Route: 048
     Dates: start: 20170203
  6. SORBIFER [Concomitant]
     Active Substance: FERROUS SULFATE
     Route: 048
     Dates: start: 20170203
  7. PYRIDOXINE [Concomitant]
     Active Substance: PYRIDOXINE
     Route: 048
     Dates: start: 20170421
  8. MOXIFLOXACIN. [Suspect]
     Active Substance: MOXIFLOXACIN
     Indication: TUBERCULOSIS
     Route: 048
     Dates: start: 20161206, end: 20170927
  9. TOCOPHERYL ACETATE [Concomitant]
     Active Substance: .ALPHA.-TOCOPHEROL ACETATE
     Route: 048
     Dates: start: 20160416
  10. CLOFAZIMINE [Suspect]
     Active Substance: CLOFAZIMINE
     Indication: TUBERCULOSIS
     Route: 048
     Dates: start: 20161206, end: 20170927
  11. CHLORPROTHIXENUM [Concomitant]
     Route: 048
     Dates: start: 20170114
  12. FOLIC ACID. [Concomitant]
     Active Substance: FOLIC ACID
     Route: 048
     Dates: start: 20170203

REACTIONS (7)
  - Hyperkalaemia [Recovered/Resolved]
  - Tuberculosis [Fatal]
  - Haemoglobin decreased [Unknown]
  - Intentional product use issue [Unknown]
  - Off label use [Unknown]
  - Creatinine renal clearance decreased [Recovering/Resolving]
  - White blood cell count increased [Unknown]

NARRATIVE: CASE EVENT DATE: 20161213
